FAERS Safety Report 7615835-1 (Version None)
Quarter: 2011Q3

REPORT INFORMATION
  Report Type: 
  Country: None (occurrence: None)
  Receive Date: 20110718
  Receipt Date: 20110718
  Transmission Date: 20111222
  Serious: Yes (Death)
  Sender: FDA-Public Use
  Company Number: None

PATIENT
  Age: 33 Year
  Sex: Female
  Weight: 45 kg

DRUGS (2)
  1. LOPINAVIR/RITONAVIR [Suspect]
     Indication: HIV INFECTION
     Dosage: 400/100 MG BID ORAL
     Route: 048
     Dates: start: 20110615, end: 20110618
  2. EMTRICITABINE AND TENOFOVIR DISOPROXIL FUMARATE [Suspect]
     Indication: HIV INFECTION
     Dosage: 200/300 MG QD ORAL
     Route: 048
     Dates: start: 20110615, end: 20110618

REACTIONS (7)
  - VOMITING [None]
  - HEADACHE [None]
  - MYDRIASIS [None]
  - PUPIL FIXED [None]
  - HEART SOUNDS ABNORMAL [None]
  - RESPIRATORY DISTRESS [None]
  - RESPIRATORY ARREST [None]
